FAERS Safety Report 6594140-9 (Version None)
Quarter: 2010Q1

REPORT INFORMATION
  Report Type: 
  Country: None (occurrence: None)
  Receive Date: 20100218
  Receipt Date: 20100218
  Transmission Date: 20100710
  Serious: Yes (Hospitalization)
  Sender: FDA-Public Use
  Company Number: None

PATIENT
  Age: 29 Year
  Sex: Female

DRUGS (1)
  1. IRON SUCROSE [Suspect]
     Indication: IRON DEFICIENCY ANAEMIA
     Dosage: 300 MG ONCE IV
     Route: 042
     Dates: start: 20090420, end: 20090420

REACTIONS (3)
  - HYPOTENSION [None]
  - RASH [None]
  - RESPIRATORY DEPRESSION [None]
